FAERS Safety Report 8145369-X (Version None)
Quarter: 2012Q1

REPORT INFORMATION
  Report Type: 
  Country: None (occurrence: None)
  Receive Date: 20120217
  Receipt Date: 20120210
  Transmission Date: 20120608
  Serious: Yes (Death, Hospitalization, Other)
  Sender: FDA-Public Use
  Company Number: DE-JNJFOC-20111208396

PATIENT
  Sex: Female
  Weight: 72 kg

DRUGS (15)
  1. NEXIUM [Concomitant]
  2. PROCORALAN [Concomitant]
  3. THYBON [Concomitant]
  4. LEVOTHYROXINE SODIUM [Concomitant]
  5. ESIDRIX [Concomitant]
  6. XARELTO [Suspect]
     Indication: ATRIAL FIBRILLATION
     Route: 065
  7. TORSEMIDE [Concomitant]
  8. INSPRA [Concomitant]
  9. AMIODARONE HCL [Concomitant]
  10. NEBIVOLOL HCL [Concomitant]
  11. SPIRIVA [Concomitant]
  12. CIPRALEX [Concomitant]
  13. ALVESCO [Concomitant]
  14. PROGYNOVA [Concomitant]
  15. SAB SIMPLEX [Concomitant]

REACTIONS (6)
  - CLOSTRIDIUM TEST POSITIVE [None]
  - HAEMATURIA [None]
  - RENAL FAILURE ACUTE [None]
  - HENOCH-SCHONLEIN PURPURA [None]
  - SEPTIC SHOCK [None]
  - LEUKOCYTOCLASTIC VASCULITIS [None]
